FAERS Safety Report 7928136-9 (Version None)
Quarter: 2011Q4

REPORT INFORMATION
  Report Type: 
  Country: None (occurrence: None)
  Receive Date: 20111118
  Receipt Date: 20111114
  Transmission Date: 20120403
  Serious: Yes (Hospitalization, Other)
  Sender: FDA-Public Use
  Company Number: US-SANOFI-AVENTIS-2011SA065119

PATIENT
  Sex: Female
  Weight: 52.3 kg

DRUGS (10)
  1. DIFLUCAN [Concomitant]
     Indication: FUNGAL INFECTION
     Route: 048
  2. PLAVIX [Suspect]
     Indication: ANTICOAGULANT THERAPY
     Route: 048
     Dates: start: 20110429, end: 20110513
  3. ZIAC [Concomitant]
     Indication: HYPERTENSION
     Route: 048
  4. VALSARTAN [Concomitant]
     Indication: BLOOD PRESSURE
  5. ALL OTHER THERAPEUTIC PRODUCTS [Concomitant]
  6. NEXIUM [Concomitant]
     Route: 048
  7. PLAVIX [Suspect]
     Route: 048
     Dates: start: 20110429, end: 20110513
  8. PLAVIX [Suspect]
     Route: 048
     Dates: start: 20110429, end: 20110513
  9. ALLEGRA-D 12 HOUR [Concomitant]
     Route: 048
  10. ALBUTEROL SULFATE AUTOHALER [Concomitant]

REACTIONS (6)
  - BLISTER [None]
  - WEIGHT DECREASED [None]
  - SCAB [None]
  - LOCALISED INFECTION [None]
  - GANGRENE [None]
  - DRUG HYPERSENSITIVITY [None]
